FAERS Safety Report 26095611 (Version 1)
Quarter: 2025Q4

REPORT INFORMATION
  Report Type: Spontaneous
  Country: JP (occurrence: JP)
  Receive Date: 20251127
  Receipt Date: 20251127
  Transmission Date: 20260118
  Serious: Yes (Other)
  Sender: NOVARTIS
  Company Number: JP-002147023-NVSJ2025JP011406

PATIENT
  Age: 82 Year
  Sex: Male

DRUGS (1)
  1. PLUVICTO [Suspect]
     Active Substance: LUTETIUM LU-177 VIPIVOTIDE TETRAXETAN
     Indication: Product used for unknown indication
     Dosage: UNK
     Route: 042
     Dates: start: 20251120, end: 20251120

REACTIONS (3)
  - Bladder tamponade [Unknown]
  - Vascular injury [Unknown]
  - Post procedural haematuria [Unknown]

NARRATIVE: CASE EVENT DATE: 20251120
